FAERS Safety Report 4433504-6 (Version None)
Quarter: 2004Q3

REPORT INFORMATION
  Report Type: 
  Country: None (occurrence: None)
  Receive Date: 20040824
  Receipt Date: 20040824
  Transmission Date: 20050211
  Serious: Yes (Disabling)
  Sender: FDA-Public Use
  Company Number: None

PATIENT
  Age: 6 Year
  Sex: Male
  Weight: 18.5068 kg

DRUGS (4)
  1. IBUPROFEN [Suspect]
     Indication: PYREXIA
     Dosage: 1 1/2 TEASPOON FULL 3 TIMES
     Dates: start: 20030306
  2. ZITHROMAX [Concomitant]
  3. TOBRAMYCIN [Concomitant]
  4. PSE/DM/GG [Concomitant]

REACTIONS (3)
  - DRUG HYPERSENSITIVITY [None]
  - LUNG TRANSPLANT [None]
  - STEVENS-JOHNSON SYNDROME [None]
